FAERS Safety Report 17070600 (Version 1)
Quarter: 2019Q4

REPORT INFORMATION
  Report Type: Spontaneous
  Country: US (occurrence: US)
  Receive Date: 20191125
  Receipt Date: 20191125
  Transmission Date: 20200122
  Serious: Yes (Other)
  Sender: FDA-Public Use
  Company Number: US-JNJFOC-20191123616

PATIENT
  Age: 72 Year
  Sex: Male
  Weight: 83.99 kg

DRUGS (1)
  1. XARELTO [Suspect]
     Active Substance: RIVAROXABAN
     Indication: THROMBOSIS PROPHYLAXIS
     Route: 048
     Dates: start: 201901

REACTIONS (5)
  - Atrial fibrillation [Recovering/Resolving]
  - Vision blurred [Unknown]
  - Colitis ulcerative [Unknown]
  - Product shape issue [Unknown]
  - Dental care [Unknown]

NARRATIVE: CASE EVENT DATE: 201910
